FAERS Safety Report 4356709-1 (Version None)
Quarter: 2004Q2

REPORT INFORMATION
  Report Type: 
  Country: None (occurrence: None)
  Receive Date: 20040507
  Receipt Date: 20040427
  Transmission Date: 20050107
  Serious: Yes (Life-Threatening, Other)
  Sender: FDA-Public Use
  Company Number: 200403670

PATIENT
  Age: 1 Year
  Sex: Male
  Weight: 8.9 kg

DRUGS (2)
  1. ACETAMINOPHEN [Suspect]
     Indication: PYREXIA
     Dosage: 150 MG
  2. IBUPROFEN [Suspect]
     Indication: PYREXIA
     Dosage: 75 MG, PO
     Route: 048
     Dates: start: 20040403, end: 20040404

REACTIONS (1)
  - HYPOTHERMIA [None]
